FAERS Safety Report 11137894 (Version 1)
Quarter: 2015Q2

REPORT INFORMATION
  Report Type: Spontaneous
  Country: US (occurrence: US)
  Receive Date: 20150526
  Receipt Date: 20150526
  Transmission Date: 20150821
  Serious: No
  Sender: FDA-Public Use
  Company Number: US-MALLINCKRODT-T201404626

PATIENT
  Age: 74 Year
  Sex: Male
  Weight: 127 kg

DRUGS (21)
  1. PREDNISONE. [Concomitant]
     Active Substance: PREDNISONE
     Dosage: 5 MG, QD
  2. LASIX [Concomitant]
     Active Substance: FUROSEMIDE
     Dosage: 20 MG, QD
  3. CELLCEPT [Concomitant]
     Active Substance: MYCOPHENOLATE MOFETIL\MYCOPHENOLATE MOFETIL HYDROCHLORIDE
     Dosage: 1250MG IN AM, 1250MG IN PM
  4. CALTRATE WITH VITAMIN D [Concomitant]
     Active Substance: CALCIUM CARBONATE\VITAMIN D
     Dosage: DAILY
  5. VITAMIN D2 [Concomitant]
     Active Substance: ERGOCALCIFEROL
     Dosage: 1.25 MG, ONCE WKLY
  6. CELLCEPT [Concomitant]
     Active Substance: MYCOPHENOLATE MOFETIL\MYCOPHENOLATE MOFETIL HYDROCHLORIDE
     Dosage: 1500MG IN AM, 1500MG IN PM
  7. FIORINAL [Concomitant]
     Active Substance: ASPIRIN\BUTALBITAL\CAFFEINE
     Dosage: AS NEEDED (PRN)
  8. H.P. ACTHAR [Suspect]
     Active Substance: CORTICOTROPIN
     Indication: POLYMYOSITIS
     Dosage: 80 U/ML, TWICE WKLY
     Route: 058
     Dates: start: 2012, end: 201402
  9. BENICAR [Concomitant]
     Active Substance: OLMESARTAN MEDOXOMIL
     Dosage: 40 MG, QD
  10. OXYGEN. [Concomitant]
     Active Substance: OXYGEN
     Dosage: UNK, PRN
  11. PRILOSEC [Concomitant]
     Active Substance: OMEPRAZOLE MAGNESIUM
     Dosage: 20.6 MG, QD
  12. COREG [Concomitant]
     Active Substance: CARVEDILOL
     Dosage: 25 MG, BID
  13. ASMANEX [Concomitant]
     Active Substance: MOMETASONE FUROATE
     Dosage: TWICE DAILY
  14. TRAMADOL [Concomitant]
     Active Substance: TRAMADOL
     Indication: PAIN
     Dosage: 3 TABS IN AM, 3 TABS IN PM
  15. CYMBALTA [Concomitant]
     Active Substance: DULOXETINE HYDROCHLORIDE
     Dosage: 60 MG, BID
  16. ZANTAC [Concomitant]
     Active Substance: RANITIDINE HYDROCHLORIDE
     Dosage: 150 MG, QHS
  17. H.P. ACTHAR [Suspect]
     Active Substance: CORTICOTROPIN
     Indication: IMMUNOLOGY TEST ABNORMAL
     Dosage: 80 U/ML, ONCE WKLY
     Route: 058
     Dates: start: 201402
  18. ALBUTEROL. [Concomitant]
     Active Substance: ALBUTEROL
     Dosage: AS NEEDED (PRN)
     Route: 055
  19. FOSAMAX [Concomitant]
     Active Substance: ALENDRONATE SODIUM
     Dosage: 70 MG, ONCE WKLY
  20. MUCINEX [Concomitant]
     Active Substance: GUAIFENESIN
     Dosage: 600 MG, QD
  21. CATAPRES [Concomitant]
     Active Substance: CLONIDINE HYDROCHLORIDE
     Dosage: 0.1 MG, QD

REACTIONS (10)
  - Back pain [Not Recovered/Not Resolved]
  - Swelling [Recovered/Resolved]
  - Muscular weakness [Not Recovered/Not Resolved]
  - Hyperhidrosis [Not Recovered/Not Resolved]
  - Blood blister [Not Recovered/Not Resolved]
  - Weight increased [Recovering/Resolving]
  - Increased tendency to bruise [Not Recovered/Not Resolved]
  - Headache [Not Recovered/Not Resolved]
  - Skin exfoliation [Not Recovered/Not Resolved]
  - Rash erythematous [Not Recovered/Not Resolved]

NARRATIVE: CASE EVENT DATE: 2012
